FAERS Safety Report 21475580 (Version 4)
Quarter: 2023Q1

REPORT INFORMATION
  Report Type: Report from Study
  Country: CA (occurrence: CA)
  Receive Date: 20221019
  Receipt Date: 20230316
  Transmission Date: 20230418
  Serious: Yes (Hospitalization)
  Sender: FDA-Public Use
  Company Number: CA-JNJFOC-20220936693

PATIENT
  Age: 48 Year
  Sex: Female

DRUGS (3)
  1. REMICADE [Suspect]
     Active Substance: INFLIXIMAB
     Indication: Crohn^s disease
     Route: 042
  2. SYNTHROID [Concomitant]
     Active Substance: LEVOTHYROXINE SODIUM
     Indication: Product used for unknown indication
     Dosage: 175 MCG
     Route: 065
  3. SYNTHROID [Concomitant]
     Active Substance: LEVOTHYROXINE SODIUM
     Dosage: 200 MCG
     Route: 065

REACTIONS (4)
  - Adenocarcinoma of the cervix [Recovered/Resolved]
  - Urinary tract infection [Recovered/Resolved]
  - Platelet count increased [Unknown]
  - Incision site impaired healing [Unknown]

NARRATIVE: CASE EVENT DATE: 20221101
